FAERS Safety Report 7244517-3 (Version None)
Quarter: 2011Q1

REPORT INFORMATION
  Report Type: 
  Country: None (occurrence: None)
  Receive Date: 20110125
  Receipt Date: 20110118
  Transmission Date: 20110831
  Serious: Yes (Hospitalization, Other)
  Sender: FDA-Public Use
  Company Number: US-ELI_LILLY_AND_COMPANY-US201012004370

PATIENT
  Sex: Male

DRUGS (7)
  1. HUMALOG [Suspect]
     Dosage: 9 U, OTHER
     Dates: start: 19950101
  2. ACE INHIBITORS [Concomitant]
  3. HUMALOG [Suspect]
     Dosage: 8 U, OTHER
     Dates: start: 19950101
  4. LANTUS [Concomitant]
     Dosage: UNK, EACH EVENING
  5. OTHER LIPID MODIFYING AGENTS [Concomitant]
  6. DIURETICS [Concomitant]
  7. HUMALOG [Suspect]
     Indication: TYPE 1 DIABETES MELLITUS
     Dosage: 7 U, OTHER
     Dates: start: 19950101

REACTIONS (2)
  - CORONARY ARTERY DISEASE [None]
  - INTERVERTEBRAL DISC PROTRUSION [None]
